FAERS Safety Report 5029263-9 (Version None)
Quarter: 2006Q2

REPORT INFORMATION
  Report Type: 
  Country: None (occurrence: None)
  Receive Date: 20060619
  Receipt Date: 20060417
  Transmission Date: 20061013
  Serious: Yes (Other)
  Sender: FDA-Public Use
  Company Number: US-BRISTOL-MYERS SQUIBB COMPANY-13349857

PATIENT
  Age: 59 Year
  Sex: Male

DRUGS (10)
  1. DEFINITY [Suspect]
     Route: 040
     Dates: start: 20060414
  2. DOBUTAMINE HCL [Concomitant]
     Dates: start: 20060414
  3. ASPIRIN [Concomitant]
     Dates: start: 20060404
  4. CRESTOR [Concomitant]
     Dates: start: 20060414
  5. DIAZEPAM [Concomitant]
     Dates: start: 20060414
  6. FELODIPINE [Concomitant]
     Dates: start: 20060414
  7. FOSINOPRIL SODIUM [Concomitant]
     Dates: start: 20060414
  8. HYDROCHLOROTHIAZIDE [Concomitant]
     Dates: start: 20060414
  9. PROPECIA [Concomitant]
  10. ZETIA [Concomitant]

REACTIONS (2)
  - THROAT TIGHTNESS [None]
  - URTICARIA [None]
